FAERS Safety Report 8337463-5 (Version None)
Quarter: 2012Q2

REPORT INFORMATION
  Report Type: 
  Country: None (occurrence: None)
  Receive Date: 20120504
  Receipt Date: 20120502
  Transmission Date: 20120825
  Serious: Yes (Death)
  Sender: FDA-Public Use
  Company Number: VE-PFIZER INC-2012101337

PATIENT
  Age: 86 Year
  Sex: Male

DRUGS (1)
  1. ZOLOFT [Suspect]
     Indication: SEDATIVE THERAPY
     Dosage: 100 MG, 1X/DAY
     Route: 048
     Dates: start: 20090101

REACTIONS (1)
  - RESPIRATORY ARREST [None]
